FAERS Safety Report 4645296-6 (Version None)
Quarter: 2005Q2

REPORT INFORMATION
  Report Type: 
  Country: None (occurrence: None)
  Receive Date: 20050331
  Receipt Date: 20050119
  Transmission Date: 20051028
  Serious: No
  Sender: FDA-Public Use
  Company Number: 04P-163-0250053-00

PATIENT
  Age: 53 Year
  Sex: Male
  Weight: 83.4619 kg

DRUGS (4)
  1. HUMIRA [Suspect]
     Indication: RHEUMATOID ARTHRITIS
     Dosage: 40 MG, 1 IN 2 WK, SUBCUTANEOUS
     Route: 058
     Dates: start: 20031217
  2. HUMIRA [Suspect]
     Indication: SYNOVITIS
     Dosage: 40 MG, 1 IN 2 WK, SUBCUTANEOUS
     Route: 058
     Dates: start: 20031217
  3. PREDNISONE TAB [Concomitant]
  4. RANITIDINE [Concomitant]

REACTIONS (6)
  - DIZZINESS [None]
  - FLUSHING [None]
  - NERVOUSNESS [None]
  - RETCHING [None]
  - STOMACH DISCOMFORT [None]
  - THERMAL BURN [None]
